FAERS Safety Report 16661875 (Version 2)
Quarter: 2019Q3

REPORT INFORMATION
  Report Type: Other
  Country: DE (occurrence: DE)
  Receive Date: 20190802
  Receipt Date: 20190809
  Transmission Date: 20191004
  Serious: Yes (Other)
  Sender: FDA-Public Use
  Company Number: DE-TOPROL ACQUISITION LLC-2019-TOP-000770

PATIENT
  Sex: Female
  Weight: 90 kg

DRUGS (1)
  1. METOPROLOL SUCCINATE. [Suspect]
     Active Substance: METOPROLOL SUCCINATE
     Indication: PRODUCT USED FOR UNKNOWN INDICATION
     Dosage: UNK
     Route: 048

REACTIONS (14)
  - Muscle spasms [Unknown]
  - Genital disorder female [Unknown]
  - Hyperhidrosis [Unknown]
  - Fluid retention [Unknown]
  - Arrhythmia [Unknown]
  - Abdominal pain upper [Unknown]
  - Abdominal pain lower [Unknown]
  - Dyspnoea [Unknown]
  - Diarrhoea [Unknown]
  - Nightmare [Unknown]
  - Dizziness [Unknown]
  - Headache [Unknown]
  - Palpitations [Unknown]
  - Constipation [Unknown]
